FAERS Safety Report 8525431-X (Version None)
Quarter: 2012Q3

REPORT INFORMATION
  Report Type: 
  Country: None (occurrence: None)
  Receive Date: 20120720
  Receipt Date: 20120710
  Transmission Date: 20120928
  Serious: Yes (Hospitalization, Other)
  Sender: FDA-Public Use
  Company Number: JP-VERTEX PHARMACEUTICALS INC.-AE-2012-002358

PATIENT
  Age: 66 Year
  Sex: Male

DRUGS (15)
  1. REBETOL [Concomitant]
     Route: 048
     Dates: start: 20120516, end: 20120626
  2. MIGLITOL [Concomitant]
     Route: 048
  3. OMEPRAZOLE [Concomitant]
     Route: 048
  4. GASTROM [Concomitant]
     Route: 048
  5. CELEBREX [Concomitant]
     Route: 048
  6. TELAVIC (TELAPREVIR) [Suspect]
     Indication: HEPATITIS C
     Route: 048
     Dates: start: 20120111
  7. PEGINTERFERON ALFA-2B [Concomitant]
     Indication: HEPATITIS C
     Route: 058
     Dates: start: 20120111, end: 20120620
  8. TELAVIC (TELAPREVIR) [Suspect]
     Route: 048
     Dates: start: 20120215, end: 20120403
  9. MAGMITT [Concomitant]
     Route: 048
  10. REBETOL [Concomitant]
     Indication: HEPATITIS C
     Route: 048
     Dates: start: 20120111, end: 20120131
  11. JUZEN-TAIHO-TO [Concomitant]
     Route: 048
  12. REBETOL [Concomitant]
     Route: 048
     Dates: start: 20120201, end: 20120214
  13. REBETOL [Concomitant]
     Route: 048
     Dates: start: 20120215, end: 20120508
  14. REBETOL [Concomitant]
     Route: 048
     Dates: start: 20120509
  15. LASIX [Concomitant]
     Route: 048

REACTIONS (7)
  - URINARY TRACT INFECTION [None]
  - HYPERURICAEMIA [None]
  - PROSTATITIS [None]
  - PLATELET COUNT DECREASED [None]
  - ANAEMIA [None]
  - DECREASED APPETITE [None]
  - XERODERMA [None]
